FAERS Safety Report 5973643-1 (Version None)
Quarter: 2008Q4

REPORT INFORMATION
  Report Type: 
  Country: None (occurrence: None)
  Receive Date: 20081201
  Receipt Date: 20081118
  Transmission Date: 20090506
  Serious: Yes (Hospitalization, Other)
  Sender: FDA-Public Use
  Company Number: US-ROXANE LABORATORIES, INC.-2008-RO-00236RO

PATIENT
  Age: 75 Year
  Sex: Female

DRUGS (20)
  1. AMLODIPINE [Suspect]
     Route: 048
  2. CALCIUM GLUCONATE [Suspect]
     Indication: HYPOTENSION
  3. VALSARTAN [Suspect]
     Route: 048
  4. ACTIVATED CHARCOAL [Suspect]
     Route: 048
  5. SODIUM CHLORIDE [Suspect]
     Indication: HYPOTENSION
     Route: 042
  6. COLLOID [Suspect]
     Indication: HYPOTENSION
  7. EPINEPHRINE [Suspect]
     Indication: HYPOTENSION
  8. EPINEPHRINE [Suspect]
  9. NOREPINEPHRINE [Suspect]
     Indication: HYPOTENSION
  10. NOREPINEPHRINE [Suspect]
  11. PHENYLEPHRINE [Suspect]
     Indication: HYPOTENSION
  12. PHENYLEPHRINE [Suspect]
  13. VASOPRESSIN [Suspect]
     Indication: HYPOTENSION
  14. VASOPRESSIN [Suspect]
  15. VASOPRESSIN [Suspect]
  16. HIE THERAPY [Suspect]
     Indication: HYPOTENSION
  17. GLUCAGON [Suspect]
     Indication: HYPOTENSION
  18. NALOXONE [Suspect]
     Indication: HYPOTENSION
  19. CALCIUM CHLORIDE [Suspect]
  20. DEXTROSE [Suspect]
     Indication: HYPERGLYCAEMIA

REACTIONS (23)
  - CARDIAC INDEX DECREASED [None]
  - COLITIS ISCHAEMIC [None]
  - DEEP VEIN THROMBOSIS [None]
  - DRUG INEFFECTIVE [None]
  - DRUG TOXICITY [None]
  - DYSPNOEA [None]
  - ELECTROCARDIOGRAM QT PROLONGED [None]
  - FLAT AFFECT [None]
  - GASTROINTESTINAL HAEMORRHAGE [None]
  - HYPERDYNAMIC LEFT VENTRICLE [None]
  - HYPOCALCAEMIA [None]
  - HYPOTENSION [None]
  - LOBAR PNEUMONIA [None]
  - OVERDOSE [None]
  - PANCREATITIS [None]
  - PULMONARY ARTERIAL WEDGE PRESSURE INCREASED [None]
  - RESPIRATORY FAILURE [None]
  - SUICIDE ATTEMPT [None]
  - TACHYCARDIA [None]
  - THROMBOCYTOPENIA [None]
  - URINARY TRACT INFECTION [None]
  - VASCULAR RESISTANCE SYSTEMIC DECREASED [None]
  - VOMITING [None]
